FAERS Safety Report 6194095-5 (Version None)
Quarter: 2009Q2

REPORT INFORMATION
  Report Type: 
  Country: None (occurrence: None)
  Receive Date: 20090518
  Receipt Date: 20090515
  Transmission Date: 20091009
  Serious: Yes (Hospitalization, Other)
  Sender: FDA-Public Use
  Company Number: US-B.I. PHARMACEUTICALS,INC./RIDGEFIELD-2009-BP-05506BP

PATIENT
  Sex: Female

DRUGS (6)
  1. SPIRIVA [Suspect]
     Indication: CHRONIC OBSTRUCTIVE PULMONARY DISEASE
     Route: 055
     Dates: start: 20071201
  2. SPIRIVA [Suspect]
     Indication: EMPHYSEMA
  3. ADVAIR HFA [Concomitant]
     Indication: CHRONIC OBSTRUCTIVE PULMONARY DISEASE
  4. ALBUTEROL [Concomitant]
     Indication: CHRONIC OBSTRUCTIVE PULMONARY DISEASE
  5. ATROVENT HFA [Concomitant]
     Indication: CHRONIC OBSTRUCTIVE PULMONARY DISEASE
  6. COMBIVENT [Concomitant]
     Indication: CHRONIC OBSTRUCTIVE PULMONARY DISEASE

REACTIONS (4)
  - CHRONIC OBSTRUCTIVE PULMONARY DISEASE [None]
  - DISEASE PROGRESSION [None]
  - LUNG NEOPLASM MALIGNANT [None]
  - PNEUMONIA [None]
